FAERS Safety Report 6256130-5 (Version None)
Quarter: 2009Q3

REPORT INFORMATION
  Report Type: 
  Country: None (occurrence: None)
  Receive Date: 20090706
  Receipt Date: 20090624
  Transmission Date: 20100115
  Serious: Yes (Other)
  Sender: FDA-Public Use
  Company Number: PHHY2009JP19721

PATIENT
  Age: 17 Year
  Sex: Female

DRUGS (1)
  1. TEGRETOL [Suspect]
     Indication: EPILEPSY

REACTIONS (1)
  - DYSACUSIS [None]
